FAERS Safety Report 8228216-7 (Version None)
Quarter: 2012Q1

REPORT INFORMATION
  Report Type: 
  Country: None (occurrence: None)
  Receive Date: 20120322
  Receipt Date: 20111219
  Transmission Date: 20120608
  Serious: Yes (Life-Threatening)
  Sender: FDA-Public Use
  Company Number: US-BRISTOL-MYERS SQUIBB COMPANY-16263402

PATIENT
  Age: 44 Year
  Sex: Female

DRUGS (3)
  1. DIPHENHYDRAMINE HCL [Concomitant]
  2. ERBITUX [Suspect]
     Indication: HEAD AND NECK CANCER
     Dosage: 1DF:11CC NO OF INF:1
     Route: 042
     Dates: start: 20111130, end: 20111130
  3. SOLU-MEDROL [Concomitant]

REACTIONS (1)
  - ANAPHYLACTIC REACTION [None]
